FAERS Safety Report 13260206 (Version 2)
Quarter: 2017Q1

REPORT INFORMATION
  Report Type: Spontaneous
  Country: IT (occurrence: IT)
  Receive Date: 20170222
  Receipt Date: 20170315
  Transmission Date: 20170428
  Serious: Yes (Hospitalization, Other)
  Sender: FDA-Public Use
  Company Number: IT-PFIZER INC-2017075810

PATIENT
  Age: 57 Year
  Sex: Female

DRUGS (5)
  1. 5-FLUOROURACIL [Concomitant]
     Active Substance: FLUOROURACIL
     Dosage: 600 MG/M2, CYCLIC (DAYS 1 2)
     Route: 042
     Dates: start: 20150812
  2. OXALIPLATIN. [Suspect]
     Active Substance: OXALIPLATIN
     Indication: ADENOCARCINOMA OF COLON
     Dosage: 85 MG, CYCLIC ON DAY 1
     Route: 041
     Dates: start: 20150812, end: 20150923
  3. 5-FLUOROURACIL [Concomitant]
     Active Substance: FLUOROURACIL
     Indication: ADENOCARCINOMA OF COLON
     Dosage: 400 MG/M2, CYCLIC (DAYS 1 2)
     Route: 040
     Dates: start: 20150812
  4. FOLINIC ACID [Concomitant]
     Active Substance: LEUCOVORIN
     Indication: ADENOCARCINOMA OF COLON
     Dosage: 200 MG/M2, CYCLIC (DAYS 1 2)
     Dates: start: 20150812
  5. CETUXIMAB. [Concomitant]
     Active Substance: CETUXIMAB
     Dosage: 500 MG/M2, CYCLIC (EVERY TWO WEEKS)
     Dates: start: 20150909

REACTIONS (1)
  - Haemolytic uraemic syndrome [Recovering/Resolving]

NARRATIVE: CASE EVENT DATE: 2015
